FAERS Safety Report 8108182-5 (Version None)
Quarter: 2012Q1

REPORT INFORMATION
  Report Type: 
  Country: None (occurrence: None)
  Receive Date: 20120202
  Receipt Date: 20120123
  Transmission Date: 20120608
  Serious: Yes (Other)
  Sender: FDA-Public Use
  Company Number: ES-JNJFOC-20120112236

PATIENT

DRUGS (5)
  1. EFALIZUMAB [Suspect]
     Indication: PSORIASIS
     Dates: start: 20081126, end: 20090315
  2. ADALIMUMAB [Suspect]
     Indication: PSORIASIS
     Dates: start: 20100707, end: 20100805
  3. STELARA [Suspect]
     Indication: PSORIASIS
     Route: 058
     Dates: start: 20091105, end: 20100128
  4. ETANERCEPT [Suspect]
     Indication: PSORIASIS
     Dates: start: 20090409, end: 20091015
  5. REMICADE [Suspect]
     Indication: PSORIASIS
     Dates: start: 20100217, end: 20100626

REACTIONS (1)
  - LUNG NEOPLASM MALIGNANT [None]
